FAERS Safety Report 15644352 (Version 7)
Quarter: 2020Q3

REPORT INFORMATION
  Report Type: Report from Study
  Country: US (occurrence: US)
  Receive Date: 20181121
  Receipt Date: 20200821
  Transmission Date: 20201102
  Serious: Yes (Hospitalization, Other)
  Sender: FDA-Public Use
  Company Number: US-ACTELION-A-US2018-175109

PATIENT
  Sex: Female
  Weight: 76.19 kg

DRUGS (4)
  1. OPSUMIT [Suspect]
     Active Substance: MACITENTAN
     Dosage: 10 MG, QD
     Route: 048
  2. OPSUMIT [Suspect]
     Active Substance: MACITENTAN
     Indication: PULMONARY ARTERIAL HYPERTENSION
     Dosage: 10 MG, QD
     Route: 048
  3. ADEMPAS [Concomitant]
     Active Substance: RIOCIGUAT
  4. OXYGEN. [Concomitant]
     Active Substance: OXYGEN
     Dosage: 2 L, AT REST, 3 L WITH ACTIVITY

REACTIONS (22)
  - Constipation [Unknown]
  - Dyspnoea [Recovering/Resolving]
  - Ascites [Unknown]
  - Dysphagia [Unknown]
  - Hypotension [Unknown]
  - Arthralgia [Unknown]
  - Glucose tolerance test [Unknown]
  - Hospitalisation [Unknown]
  - Weight increased [Unknown]
  - Gastrooesophageal reflux disease [Unknown]
  - Anaemia [Unknown]
  - Unevaluable event [Unknown]
  - Haemoglobin decreased [Unknown]
  - Cough [Unknown]
  - Choking sensation [Unknown]
  - Pain [Unknown]
  - Peripheral swelling [Recovering/Resolving]
  - Mineral supplementation [Unknown]
  - Heart rate increased [Unknown]
  - Blood potassium decreased [Unknown]
  - Oxygen saturation decreased [Unknown]
  - Fatigue [Unknown]

NARRATIVE: CASE EVENT DATE: 2018
